FAERS Safety Report 5776076-6 (Version None)
Quarter: 2008Q2

REPORT INFORMATION
  Report Type: 
  Country: None (occurrence: None)
  Receive Date: 20080613
  Receipt Date: 20080606
  Transmission Date: 20081010
  Serious: Yes (Life-Threatening, Other)
  Sender: FDA-Public Use
  Company Number: 167-C5013-06110604

PATIENT
  Age: 54 Year
  Sex: Female
  Weight: 56 kg

DRUGS (6)
  1. CC-5013 (LENALIDOMIDE) (CAPSULES) [Suspect]
     Indication: MYELODYSPLASTIC SYNDROME
     Dosage: 5 MG, 1 IN 1 D, ORAL
     Route: 048
     Dates: start: 20060510
  2. CC-5013\PLACEBO (LENALIDOMIDE) (CAPSULES) [Suspect]
     Indication: MYELODYSPLASTIC SYNDROME
     Dosage: ORAL
     Route: 048
  3. G-CSF (GANDULOCYTE COLONY STIMULATING FACTOR) [Concomitant]
  4. LOPERAMIDE [Concomitant]
  5. IBUPROFEN [Concomitant]
  6. DAKTARIN ORAL GEL (MICONAZOLE) [Concomitant]

REACTIONS (3)
  - HAEMOGLOBIN DECREASED [None]
  - NEUTROPENIA [None]
  - THROMBOCYTOPENIA [None]
